FAERS Safety Report 11938560 (Version 2)
Quarter: 2016Q1

REPORT INFORMATION
  Report Type: Spontaneous
  Country: JP (occurrence: JP)
  Receive Date: 20160122
  Receipt Date: 20160225
  Transmission Date: 20160526
  Serious: Yes (Hospitalization, Other)
  Sender: FDA-Public Use
  Company Number: JP-GLAXOSMITHKLINE-JP2016JPN007664

PATIENT
  Age: 46 Year
  Sex: Female

DRUGS (7)
  1. LAMICTAL [Suspect]
     Active Substance: LAMOTRIGINE
     Dosage: 50 MG, QD
     Route: 048
     Dates: start: 20150603, end: 20150624
  2. FORSENID [Concomitant]
     Indication: CONSTIPATION
     Dosage: 24 MG, PRN
     Dates: start: 20141222
  3. RIVOTRIL [Concomitant]
     Active Substance: CLONAZEPAM
     Indication: DEPRESSED MOOD
     Dosage: 0.25 MG, BID
     Dates: start: 20141208
  4. RISPERIDONE. [Concomitant]
     Active Substance: RISPERIDONE
     Indication: DEPRESSED MOOD
     Dosage: 2 MG, QD
  5. LAMICTAL [Suspect]
     Active Substance: LAMOTRIGINE
     Indication: MANIA
     Dosage: 25 MG, QD
     Route: 048
     Dates: start: 20150520, end: 20150603
  6. ROZEREM [Concomitant]
     Active Substance: RAMELTEON
     Indication: INSOMNIA
     Dosage: 8 MG, QD
     Dates: start: 20141208
  7. MAGMITT [Concomitant]
     Active Substance: MAGNESIUM OXIDE
     Indication: CONSTIPATION
     Dosage: 500 MG, TID
     Dates: start: 20141208

REACTIONS (9)
  - Splenomegaly [Recovering/Resolving]
  - Eosinophil count increased [Recovering/Resolving]
  - Pyrexia [Recovering/Resolving]
  - Drug reaction with eosinophilia and systemic symptoms [Recovering/Resolving]
  - Lymphadenopathy [Recovering/Resolving]
  - Hepatic function abnormal [Recovering/Resolving]
  - Hepatic steatosis [Recovering/Resolving]
  - Rash pruritic [Recovering/Resolving]
  - Inflammation [Recovering/Resolving]

NARRATIVE: CASE EVENT DATE: 20150623
